FAERS Safety Report 17104783 (Version 1)
Quarter: 2019Q4

REPORT INFORMATION
  Report Type: Spontaneous
  Country: US (occurrence: US)
  Receive Date: 20191203
  Receipt Date: 20191203
  Transmission Date: 20200122
  Serious: No
  Sender: FDA-Public Use
  Company Number: US-APOTEX-2019AP025332

PATIENT
  Age: 52 Year
  Sex: Female

DRUGS (3)
  1. FLUTICASONE. [Suspect]
     Active Substance: FLUTICASONE
     Indication: UPPER-AIRWAY COUGH SYNDROME
     Dosage: UNK (TWO SPRAYS IN EACH NOSTRILS)
     Route: 045
     Dates: start: 20191120, end: 20191120
  2. MUCINEX [Concomitant]
     Active Substance: GUAIFENESIN
     Indication: COUGH
     Dosage: UNK, Q.12H
     Route: 048
     Dates: start: 20191120
  3. BENZONATATE. [Concomitant]
     Active Substance: BENZONATATE
     Indication: COUGH
     Dosage: UNK, Q.6H
     Route: 048
     Dates: start: 20191119

REACTIONS (2)
  - Sensation of foreign body [Recovered/Resolved]
  - Throat tightness [Recovered/Resolved]

NARRATIVE: CASE EVENT DATE: 20191120
